FAERS Safety Report 25586834 (Version 1)
Quarter: 2025Q3

REPORT INFORMATION
  Report Type: Spontaneous
  Country: US (occurrence: US)
  Receive Date: 20250721
  Receipt Date: 20250721
  Transmission Date: 20251021
  Serious: No
  Sender: Phathom Pharmaceuticals
  Company Number: US-PHATHOM PHARMACEUTICALS INC.-2025PHT01014

PATIENT
  Age: 34 Year
  Sex: Male

DRUGS (3)
  1. VOQUEZNA [Suspect]
     Active Substance: VONOPRAZAN FUMARATE
     Indication: Abdominal pain
     Dosage: 20 MG, 1X/DAY
     Route: 048
     Dates: start: 20250314, end: 20250319
  2. FAMOTIDINE [Concomitant]
     Active Substance: FAMOTIDINE
  3. OLMESARTAN [Concomitant]
     Active Substance: OLMESARTAN

REACTIONS (2)
  - Myalgia [Unknown]
  - Off label use [Recovered/Resolved]

NARRATIVE: CASE EVENT DATE: 20250314
